FAERS Safety Report 4787658-2 (Version None)
Quarter: 2005Q3

REPORT INFORMATION
  Report Type: 
  Country: None (occurrence: None)
  Receive Date: 20050923
  Receipt Date: 20050527
  Transmission Date: 20060218
  Serious: No
  Sender: FDA-Public Use
  Company Number: P200500010

PATIENT
  Age: 78 Year
  Sex: Male
  Weight: 79.4 kg

DRUGS (6)
  1. PLENAXIS [Suspect]
     Indication: PROSTATE CANCER METASTATIC
     Dosage: 100 MG, SINGLE, INTRAMUSCULAR
     Route: 030
     Dates: start: 20050113, end: 20050113
  2. PLENAXIS [Suspect]
     Indication: PROSTATE CANCER METASTATIC
     Dosage: 100 MG, SINGLE, INTRAMUSCULAR
     Route: 030
     Dates: start: 20050127, end: 20050127
  3. NAPROSYN [Concomitant]
  4. VICODIN [Concomitant]
  5. SOMA [Concomitant]
  6. FLOMAX [Concomitant]

REACTIONS (1)
  - LIVER FUNCTION TEST ABNORMAL [None]
